FAERS Safety Report 10377026 (Version 2)
Quarter: 2016Q1

REPORT INFORMATION
  Report Type: Spontaneous
  Country: US (occurrence: US)
  Receive Date: 20140812
  Receipt Date: 20160311
  Transmission Date: 20160525
  Serious: Yes (Hospitalization)
  Sender: FDA-Public Use
  Company Number: US-009507513-1408USA003774

PATIENT
  Age: 54 Year
  Sex: Male

DRUGS (11)
  1. LEVOXYL [Concomitant]
     Active Substance: LEVOTHYROXINE SODIUM
     Dosage: 125 MICROGRAM DAILY, 1 IN 1D
     Route: 048
  2. INCIVEK [Suspect]
     Active Substance: TELAPREVIR
     Indication: HEPATITIS C
     Dosage: 375 MG 2 CAP EVERY 8 HOURS X30 DAYS(375MG,2 IN 8 HR)
     Route: 048
  3. LOTRISONE [Concomitant]
     Active Substance: BETAMETHASONE DIPROPIONATE\CLOTRIMAZOLE
     Dosage: 0.05% CREAM APP CRM BID
     Route: 061
  4. LEVOXYL [Concomitant]
     Active Substance: LEVOTHYROXINE SODIUM
     Dosage: 137 MICROGRAM, QD
     Route: 048
  5. COPEGUS [Suspect]
     Active Substance: RIBAVIRIN
     Indication: HEPATITIS C
     Dosage: 600MG,1 IN 1 D, QAM
     Route: 048
  6. COPEGUS [Suspect]
     Active Substance: RIBAVIRIN
     Dosage: 400MG, 1 IN 1 D
     Route: 048
  7. COPEGUS [Suspect]
     Active Substance: RIBAVIRIN
     Dosage: 600MG AM AND 400MG PM
     Route: 048
     Dates: start: 20130314
  8. COPEGUS [Suspect]
     Active Substance: RIBAVIRIN
     Dosage: 600MG,2 IN 1 D
     Route: 048
     Dates: start: 201201
  9. VICTRELIS [Suspect]
     Active Substance: BOCEPREVIR
     Indication: HEPATITIS C
     Dosage: 4 DF BY MOUTH TID(3 IN 1 D)
     Route: 048
     Dates: start: 20130131
  10. PEGASYS [Suspect]
     Active Substance: PEGINTERFERON ALFA-2A
     Indication: CHRONIC HEPATITIS C
     Dosage: 180 MICROGRAM, QW
     Route: 058
  11. CUBICIN [Concomitant]
     Active Substance: DAPTOMYCIN
     Dosage: UNK

REACTIONS (15)
  - Headache [Unknown]
  - Back pain [Unknown]
  - Skin lesion [Unknown]
  - Pruritus [Unknown]
  - Hepatitis C [Unknown]
  - Anger [Unknown]
  - Upper respiratory tract infection [Unknown]
  - Fatigue [Unknown]
  - Tenderness [Unknown]
  - Abscess [Unknown]
  - Myalgia [Unknown]
  - Dyspnoea [Unknown]
  - Depression [Unknown]
  - Nightmare [Unknown]
  - Cough [Unknown]

NARRATIVE: CASE EVENT DATE: 201301
